FAERS Safety Report 4900875-3 (Version None)
Quarter: 2006Q1

REPORT INFORMATION
  Report Type: 
  Country: None (occurrence: None)
  Receive Date: 20060201
  Receipt Date: 20060117
  Transmission Date: 20060701
  Serious: Yes (Death, Hospitalization)
  Sender: FDA-Public Use
  Company Number: 220561

PATIENT

DRUGS (3)
  1. AVASTIN [Suspect]
     Indication: COLORECTAL CANCER
     Dosage: 510 MG, UNK, INTRAVENOUS
     Route: 042
     Dates: start: 20051201
  2. XELODA [Suspect]
     Indication: COLORECTAL CANCER
     Dosage: 3300 MG, QD, ORAL
     Route: 048
     Dates: start: 20051201
  3. NEXIUM [Concomitant]

REACTIONS (5)
  - ARTERIOSPASM CORONARY [None]
  - INTESTINAL OBSTRUCTION [None]
  - METASTASES TO PERITONEUM [None]
  - PULMONARY EMBOLISM [None]
  - SEPSIS [None]
